FAERS Safety Report 5879302-8 (Version None)
Quarter: 2008Q3

REPORT INFORMATION
  Report Type: 
  Country: None (occurrence: None)
  Receive Date: 20080909
  Receipt Date: 20080909
  Transmission Date: 20090109
  Serious: Yes (Life-Threatening, Hospitalization)
  Sender: FDA-Public Use
  Company Number: None

PATIENT
  Age: 51 Year
  Sex: Female
  Weight: 49.8957 kg

DRUGS (2)
  1. MEPERIDINE HCL [Suspect]
     Indication: PAIN
     Dosage: 125 MG ONCE IV
     Route: 042
     Dates: start: 20080805, end: 20080805
  2. PROMETHAZINE [Suspect]
     Indication: ANTIEMETIC SUPPORTIVE CARE
     Dosage: 50 MG ONCE IV
     Route: 042
     Dates: start: 20080805, end: 20080805

REACTIONS (7)
  - CARDIO-RESPIRATORY ARREST [None]
  - DRUG INTOLERANCE [None]
  - HYPOTENSION [None]
  - HYPOXIA [None]
  - LOSS OF CONSCIOUSNESS [None]
  - RESPIRATORY DEPRESSION [None]
  - SOMNOLENCE [None]
